FAERS Safety Report 18558776 (Version 1)
Quarter: 2020Q4

REPORT INFORMATION
  Report Type: Spontaneous
  Country: DE (occurrence: DE)
  Receive Date: 20201130
  Receipt Date: 20201130
  Transmission Date: 20210114
  Serious: Yes (Other)
  Sender: FDA-Public Use
  Company Number: DE-PFIZER INC-2020464365

PATIENT
  Age: 56 Month

DRUGS (2)
  1. TRANEXAMIC ACID. [Suspect]
     Active Substance: TRANEXAMIC ACID
     Indication: HAEMORRHAGE
     Dosage: 15 MG/KG (IN 3 SINGLE DOSES AT 12-H INTERVALS)
     Route: 042
  2. URSODIOL. [Concomitant]
     Active Substance: URSODIOL
     Dosage: 300 MG/M2, DAILY
     Route: 048

REACTIONS (1)
  - Venoocclusive liver disease [Recovered/Resolved]
